FAERS Safety Report 19743484 (Version 1)
Quarter: 2021Q3

REPORT INFORMATION
  Report Type: Spontaneous
  Country: US (occurrence: US)
  Receive Date: 20210824
  Receipt Date: 20210824
  Transmission Date: 20211014
  Serious: No
  Sender: FDA-Public Use
  Company Number: US-EVOLUS, INC.-2021EV000133

PATIENT
  Age: 38 Year
  Sex: Female
  Weight: 62.2 kg

DRUGS (2)
  1. JEUVEAU [Suspect]
     Active Substance: PRABOTULINUMTOXINA-XVFS
     Indication: PRODUCT USED FOR UNKNOWN INDICATION
  2. JEUVEAU [Suspect]
     Active Substance: PRABOTULINUMTOXINA-XVFS
     Indication: SKIN WRINKLING
     Dosage: 5 UNITS AROUND EYES (CROW^S FEET)
     Dates: start: 20210524

REACTIONS (5)
  - Feeling hot [Unknown]
  - Periorbital swelling [Unknown]
  - Swelling face [Unknown]
  - Off label use [Unknown]
  - Rash [Unknown]
